FAERS Safety Report 8977841 (Version 2)
Quarter: 2013Q1

REPORT INFORMATION
  Report Type: Report from Study
  Country: NL (occurrence: NL)
  Receive Date: 20121220
  Receipt Date: 20121228
  Transmission Date: 20140127
  Serious: Yes (Hospitalization)
  Sender: FDA-Public Use
  Company Number: NL-ASTRAZENECA-2012SE93816

PATIENT
  Age: 23079 Day
  Sex: Male

DRUGS (6)
  1. AZD6140 [Suspect]
     Indication: CORONARY ARTERY DISEASE
     Route: 048
     Dates: start: 20111027, end: 20121210
  2. SPIRONOLACTON [Concomitant]
     Indication: CORONARY ARTERY DISEASE
     Route: 048
  3. CRESTOR [Concomitant]
     Indication: CORONARY ARTERY DISEASE
     Route: 048
  4. METOPROLOL [Concomitant]
     Indication: CORONARY ARTERY DISEASE
     Route: 048
  5. DIOVAN [Concomitant]
     Indication: HYPERTENSION
     Route: 048
  6. ASA [Concomitant]
     Route: 048

REACTIONS (1)
  - Mallory-Weiss syndrome [Recovered/Resolved]
